FAERS Safety Report 16928749 (Version 1)
Quarter: 2019Q4

REPORT INFORMATION
  Report Type: Spontaneous
  Country: ES (occurrence: ES)
  Receive Date: 20191017
  Receipt Date: 20191017
  Transmission Date: 20200122
  Serious: Yes (Hospitalization)
  Sender: FDA-Public Use
  Company Number: ES-TEVA-2019-ES-1122437

PATIENT
  Age: 68 Year
  Sex: Male
  Weight: 82 kg

DRUGS (2)
  1. GEMCITABINA (7314A) [Suspect]
     Active Substance: GEMCITABINE HYDROCHLORIDE
     Indication: TRANSITIONAL CELL CARCINOMA
     Dosage: 800 MG/M2
     Route: 042
     Dates: start: 20190514
  2. CARBOPLATINO (2323A) [Suspect]
     Active Substance: CARBOPLATIN
     Indication: TRANSITIONAL CELL CANCER OF RENAL PELVIS AND URETER METASTATIC
     Route: 042
     Dates: start: 20190514

REACTIONS (1)
  - Peripheral ischaemia [Recovered/Resolved]

NARRATIVE: CASE EVENT DATE: 20190620
